FAERS Safety Report 7646620-2 (Version None)
Quarter: 2011Q3

REPORT INFORMATION
  Report Type: 
  Country: None (occurrence: None)
  Receive Date: 20110801
  Receipt Date: 20110721
  Transmission Date: 20111222
  Serious: Yes (Life-Threatening)
  Sender: FDA-Public Use
  Company Number: JP-AMGEN-JPNSP2010000513

PATIENT
  Age: 89 Year
  Sex: Female

DRUGS (8)
  1. ENBREL [Suspect]
     Indication: RHEUMATOID ARTHRITIS
     Dosage: 25 MG, QWK
     Route: 058
     Dates: start: 20100401, end: 20100901
  2. PREDNISOLONE [Concomitant]
     Indication: RHEUMATOID ARTHRITIS
     Dosage: UNSPECIFIED
     Route: 061
     Dates: start: 20100301
  3. PREDNISOLONE FARNESYLATE [Concomitant]
     Indication: RHEUMATOID ARTHRITIS
     Dosage: UNK
     Dates: start: 20100301
  4. ADOFEED [Concomitant]
     Dosage: UNSPECIFED
     Route: 061
     Dates: start: 20100301
  5. BIOTIN [Concomitant]
     Indication: DERMATITIS
     Dosage: UNSPECIFIED
     Route: 048
     Dates: start: 20100201
  6. ALENDRONATE SODIUM [Concomitant]
     Indication: OSTEOPOROSIS
     Dosage: 5 MG, UNK
     Route: 048
     Dates: start: 20100101
  7. ALFAROL [Concomitant]
     Indication: OSTEOPOROSIS
     Dosage: UNSPECIFIED
     Route: 048
     Dates: start: 20100101
  8. AZULFIDINE [Concomitant]
     Dosage: UNK
     Route: 048
     Dates: start: 20100101, end: 20100301

REACTIONS (1)
  - INTERSTITIAL LUNG DISEASE [None]
